FAERS Safety Report 9624458 (Version 2)
Quarter: 2014Q1

REPORT INFORMATION
  Report Type: Spontaneous
  Country: GB (occurrence: GB)
  Receive Date: 20131015
  Receipt Date: 20140207
  Transmission Date: 20141002
  Serious: Yes (Hospitalization)
  Sender: FDA-Public Use
  Company Number: GB-ACTAVIS-2013-18451

PATIENT
  Age: 58 Year
  Sex: Male

DRUGS (12)
  1. TRAMADOL (UNKNOWN) [Suspect]
     Indication: PAIN
     Dosage: 50 MG, TID
     Route: 048
     Dates: start: 20130805, end: 20130827
  2. TRAMADOL (UNKNOWN) [Suspect]
     Indication: TOOTH ABSCESS
  3. INCIVO [Suspect]
     Indication: HEPATITIS C
     Dosage: 2250 MG, DAILY
     Route: 048
     Dates: start: 20130531, end: 20130805
  4. COPEGUS [Suspect]
     Indication: HEPATITIS C
     Dosage: 200 MG, DAILY
     Route: 048
     Dates: start: 20130719, end: 20130830
  5. COPEGUS [Suspect]
     Dosage: 400 MG, DAILY
     Route: 048
     Dates: start: 20130617, end: 20130625
  6. COPEGUS [Suspect]
     Dosage: 800 MG, DAILY
     Route: 048
     Dates: start: 20130610, end: 20130617
  7. COPEGUS [Suspect]
     Dosage: 1000 MG, DAILY
     Route: 048
     Dates: start: 20130605, end: 20130610
  8. COPEGUS [Suspect]
     Dosage: 1200 MG, DAILY
     Route: 048
     Dates: start: 20130503, end: 20130605
  9. PROPRANOLOL [Concomitant]
     Indication: ASCITES
     Dosage: 80 MG, DAILY
     Route: 048
     Dates: start: 20120102
  10. PARACETAMOL [Concomitant]
     Indication: ANALGESIC THERAPY
     Dosage: 500 MG, PRN
     Route: 048
  11. FLUOXETINE [Concomitant]
     Indication: DEPRESSION
     Dosage: 20 MG, BID
     Route: 048
     Dates: start: 20130417
  12. FUROSEMIDE [Concomitant]
     Indication: ASCITES
     Dosage: 40 MG, BID
     Route: 048
     Dates: start: 20120102

REACTIONS (9)
  - Psychotic disorder [Recovered/Resolved]
  - Hallucination [Recovered/Resolved]
  - Hypokalaemia [Unknown]
  - Anaemia [Recovered/Resolved]
  - Thrombocytopenia [Recovered/Resolved]
  - Oedema peripheral [Unknown]
  - Nausea [Unknown]
  - Memory impairment [Unknown]
  - Malnutrition [Unknown]
